FAERS Safety Report 7268276-3 (Version None)
Quarter: 2011Q1

REPORT INFORMATION
  Report Type: 
  Country: None (occurrence: None)
  Receive Date: 20110201
  Receipt Date: 20110121
  Transmission Date: 20110831
  Serious: Yes (Hospitalization)
  Sender: FDA-Public Use
  Company Number: US-JNJFOC-20110106441

PATIENT
  Sex: Female
  Weight: 68.04 kg

DRUGS (4)
  1. USTEKINUMAB [Suspect]
     Indication: PSORIASIS
     Route: 058
  2. METHOTREXATE [Suspect]
     Indication: PSORIASIS
     Route: 048
  3. TACLONEX [Concomitant]
  4. TEMOVATE [Concomitant]

REACTIONS (1)
  - THYROID CANCER [None]
